FAERS Safety Report 12408549 (Version 1)
Quarter: 2016Q2

REPORT INFORMATION
  Report Type: Spontaneous
  Country: DE (occurrence: DE)
  Receive Date: 20160526
  Receipt Date: 20160526
  Transmission Date: 20160815
  Serious: Yes (Other)
  Sender: FDA-Public Use
  Company Number: DE-TEVA-661325GER

PATIENT
  Age: 81 Year
  Sex: Female

DRUGS (3)
  1. FENTANYL. [Concomitant]
     Active Substance: FENTANYL
     Indication: INDUCTION OF ANAESTHESIA
     Route: 042
     Dates: start: 20160405
  2. CEFUROXIME. [Suspect]
     Active Substance: CEFUROXIME
     Route: 041
     Dates: start: 20160405
  3. PROPOFOL. [Concomitant]
     Active Substance: PROPOFOL
     Indication: INDUCTION OF ANAESTHESIA
     Route: 042
     Dates: start: 20160405

REACTIONS (2)
  - Cardiovascular insufficiency [Recovered/Resolved]
  - Bradycardia [Recovered/Resolved]

NARRATIVE: CASE EVENT DATE: 20160405
